FAERS Safety Report 18797111 (Version 1)
Quarter: 2021Q1

REPORT INFORMATION
  Report Type: Report from Study
  Country: CO (occurrence: CO)
  Receive Date: 20210127
  Receipt Date: 20210127
  Transmission Date: 20210419
  Serious: Yes (Other)
  Sender: FDA-Public Use
  Company Number: NVSC2020CO318684

PATIENT
  Age: 68 Year
  Sex: Male
  Weight: 70 kg

DRUGS (1)
  1. COSENTYX [Suspect]
     Active Substance: SECUKINUMAB
     Indication: PSORIATIC ARTHROPATHY
     Dosage: 300 MG, QMO
     Route: 058
     Dates: start: 20180801

REACTIONS (4)
  - Skin exfoliation [Recovering/Resolving]
  - Pruritus [Recovered/Resolved]
  - Hyperthyroidism [Unknown]
  - Dandruff [Unknown]

NARRATIVE: CASE EVENT DATE: 2019
